FAERS Safety Report 20163650 (Version 1)
Quarter: 2021Q4

REPORT INFORMATION
  Report Type: Report from Study
  Country: CA (occurrence: CA)
  Receive Date: 20211209
  Receipt Date: 20211209
  Transmission Date: 20220303
  Serious: Yes (Other)
  Sender: FDA-Public Use
  Company Number: CA-CHIESI-2021CHF06044

PATIENT
  Sex: Female
  Weight: 52.8 kg

DRUGS (2)
  1. DEFERIPRONE [Suspect]
     Active Substance: DEFERIPRONE
     Indication: Thalassaemia
     Dosage: 3000 MILLIGRAM, Q12H
     Route: 048
  2. DEFERIPRONE [Suspect]
     Active Substance: DEFERIPRONE
     Dosage: 2500 MILLIGRAM, BID
     Route: 048

REACTIONS (3)
  - Hepatic cirrhosis [Unknown]
  - Blood urine present [Unknown]
  - Therapy change [Unknown]
